FAERS Safety Report 17182997 (Version 2)
Quarter: 2019Q4

REPORT INFORMATION
  Report Type: Spontaneous
  Country: IT (occurrence: IT)
  Receive Date: 20191220
  Receipt Date: 20191224
  Transmission Date: 20200122
  Serious: Yes (Death)
  Sender: FDA-Public Use
  Company Number: IT-MYLANLABS-2019M1126395

PATIENT
  Age: 56 Year
  Sex: Female

DRUGS (3)
  1. CEFAZOLIN SODIUM. [Interacting]
     Active Substance: CEFAZOLIN SODIUM
     Indication: BACTERIAL SEPSIS
     Dosage: 6 GRAM, QD
     Route: 042
     Dates: start: 20190220
  2. PIPERACILLIN/TAZOBACTAM [Suspect]
     Active Substance: PIPERACILLIN SODIUM\TAZOBACTAM SODIUM
     Indication: SEPTIC SHOCK
     Dosage: 4.5 GRAM, QD
     Route: 042
     Dates: start: 20190220
  3. FLUCONAZOLE. [Interacting]
     Active Substance: FLUCONAZOLE
     Indication: FUNGAL SEPSIS
     Dosage: 200 MILLIGRAM, QD
     Route: 042

REACTIONS (3)
  - Drug interaction [Unknown]
  - Hypotension [Fatal]
  - Product preparation error [Fatal]

NARRATIVE: CASE EVENT DATE: 20190220
